FAERS Safety Report 23391822 (Version 2)
Quarter: 2024Q1

REPORT INFORMATION
  Report Type: Report from Study
  Country: DE (occurrence: DE)
  Receive Date: 20240111
  Receipt Date: 20240119
  Transmission Date: 20240409
  Serious: Yes (Other)
  Sender: FDA-Public Use
  Company Number: DE-MYLANLABS-2024M1002409

PATIENT
  Sex: Male

DRUGS (1)
  1. GLATIRAMER [Suspect]
     Active Substance: GLATIRAMER
     Indication: Multiple sclerosis
     Dosage: 40 MILLIGRAM PER MILLILITRE
     Route: 065
     Dates: start: 20220903, end: 20231015

REACTIONS (2)
  - Loss of consciousness [Recovered/Resolved]
  - Adverse event [Recovered/Resolved]
